FAERS Safety Report 22245262 (Version 1)
Quarter: 2023Q2

REPORT INFORMATION
  Report Type: Other
  Country: US (occurrence: US)
  Receive Date: 20230424
  Receipt Date: 20230424
  Transmission Date: 20230721
  Serious: Yes (Hospitalization, Other)
  Sender: FDA-Public Use
  Company Number: US-ASTELLAS-2023US012589

PATIENT
  Age: 82 Year
  Sex: Female

DRUGS (5)
  1. CRESEMBA [Suspect]
     Active Substance: ISAVUCONAZONIUM SULFATE
     Indication: Product used for unknown indication
     Dosage: UNK UNK, UNKNOWN FREQ.
     Route: 065
  2. VORICONAZOLE [Suspect]
     Active Substance: VORICONAZOLE
     Indication: Product used for unknown indication
     Dosage: UNK UNK, UNKNOWN FREQ.
     Route: 065
  3. INQOVI [Suspect]
     Active Substance: CEDAZURIDINE\DECITABINE
     Indication: Myelodysplastic syndrome
     Dosage: 1 DF, ONCE DAILY (35 MG OF DECITABINE AND 100 MG OF CEDAZURIDINE)
     Route: 048
     Dates: start: 20220615
  4. INQOVI [Suspect]
     Active Substance: CEDAZURIDINE\DECITABINE
     Indication: Cytogenetic abnormality
     Dosage: 1 DF, ONCE DAILY (35 MG OF DECITABINE AND 100 MG OF CEDAZURIDINE)
     Route: 048
  5. INQOVI [Suspect]
     Active Substance: CEDAZURIDINE\DECITABINE
     Indication: Myelodysplastic syndrome with single lineage dysplasia
     Dosage: 1 DF, ONCE DAILY (35 MG OF DECITABINE AND 100 MG OF CEDAZURIDINE)
     Route: 048

REACTIONS (6)
  - Neutropenic colitis [Unknown]
  - Infection [Recovered/Resolved]
  - Diarrhoea [Unknown]
  - Platelet count decreased [Unknown]
  - Blood iron increased [Unknown]
  - Malaise [Unknown]

NARRATIVE: CASE EVENT DATE: 20220615
